FAERS Safety Report 8859504 (Version 1)
Quarter: 2012Q4

REPORT INFORMATION
  Report Type: 
  Country: US (occurrence: US)
  Receive Date: 20121024
  Receipt Date: 20121024
  Transmission Date: 20130627
  Serious: Yes (Life-Threatening, Hospitalization, Other)
  Sender: FDA-Public Use
  Company Number: US-ROCHE-GNE218632

PATIENT
  Age: 66 Year
  Sex: Female

DRUGS (3)
  1. RAPTIVA [Suspect]
     Indication: PSORIASIS
     Dosage: .5 mL, single
     Route: 058
     Dates: start: 20050622, end: 20050913
  2. RAPTIVA [Suspect]
     Dosage: .7 mL, 2/week
     Route: 065
     Dates: start: 20050622, end: 20050913
  3. CELEBREX [Concomitant]
     Indication: PRODUCT USED FOR UNKNOWN INDICATION

REACTIONS (4)
  - Thrombocytopenia [Recovered/Resolved]
  - Petechiae [Unknown]
  - Arthritis [Unknown]
  - Pain [Unknown]
